APPROVED DRUG PRODUCT: IMIQUIMOD
Active Ingredient: IMIQUIMOD
Strength: 5%
Dosage Form/Route: CREAM;TOPICAL
Application: A200173 | Product #001 | TE Code: AB
Applicant: TARO PHARMACEUTICAL INDUSTRIES LTD
Approved: Apr 15, 2011 | RLD: No | RS: No | Type: RX